FAERS Safety Report 5964902-7 (Version None)
Quarter: 2008Q4

REPORT INFORMATION
  Report Type: 
  Country: None (occurrence: None)
  Receive Date: 20081124
  Receipt Date: 20081124
  Transmission Date: 20090506
  Serious: Yes (Life-Threatening)
  Sender: FDA-Public Use
  Company Number: None

PATIENT
  Age: 47 Year
  Sex: Female

DRUGS (1)
  1. PREGABALIN 100 MG [Suspect]
     Indication: NEURALGIA
     Dosage: 100 MG DAILY PO
     Route: 048
     Dates: start: 20081001, end: 20081002

REACTIONS (4)
  - AUTOIMMUNE THROMBOCYTOPENIA [None]
  - HALLUCINATION, VISUAL [None]
  - PARANOIA [None]
  - THROMBOCYTOPENIA [None]
